FAERS Safety Report 20866375 (Version 1)
Quarter: 2022Q2

REPORT INFORMATION
  Report Type: Spontaneous
  Country: US (occurrence: None)
  Receive Date: 20220523
  Receipt Date: 20220523
  Transmission Date: 20220721
  Serious: No
  Sender: FDA-Public Use
  Company Number: None

PATIENT

DRUGS (2)
  1. TADALAFIL [Suspect]
     Active Substance: TADALAFIL
     Indication: Pulmonary arterial hypertension
     Dosage: FREQUENCY : DAILY;?
     Route: 048
     Dates: start: 202111
  2. TADALAFIL [Suspect]
     Active Substance: TADALAFIL
     Indication: Cardiac failure congestive

REACTIONS (5)
  - Pruritus [None]
  - Haemorrhage [None]
  - Drug ineffective [None]
  - Pruritus [None]
  - Therapy cessation [None]
